FAERS Safety Report 6338704-6 (Version None)
Quarter: 2009Q3

REPORT INFORMATION
  Report Type: 
  Country: None (occurrence: None)
  Receive Date: 20090903
  Receipt Date: 20070402
  Transmission Date: 20100115
  Serious: Yes (Other)
  Sender: FDA-Public Use
  Company Number: US-ASTRAZENECA-2006UW01616

PATIENT
  Age: 19936 Day
  Sex: Female
  Weight: 97.5 kg

DRUGS (25)
  1. SEROQUEL [Suspect]
     Indication: MAJOR DEPRESSION
     Route: 048
     Dates: start: 20020423, end: 20021112
  2. SEROQUEL [Suspect]
     Dosage: 50 - 100 MG AT NIGHT
     Route: 048
     Dates: start: 20020423
  3. SEROQUEL [Suspect]
     Route: 048
     Dates: start: 20021121, end: 20060802
  4. ZYPREXA [Suspect]
     Dates: start: 20020423
  5. METOCLOPRAMIDE [Concomitant]
     Dates: start: 20020423
  6. ZOLOFT [Concomitant]
     Indication: DEPRESSION
     Dosage: 50 - 150 MG DAILY
     Dates: start: 20020423
  7. ATIVAN [Concomitant]
     Dosage: 0.5 - 3 MG DAILY
     Dates: start: 20020423
  8. TOPROL-XL [Concomitant]
     Dosage: 12.5 - 100 MG DAILY
     Dates: start: 20020423
  9. PROTONIX [Concomitant]
     Dates: start: 20020423
  10. LASIX [Concomitant]
     Dates: start: 20020423
  11. LIPITOR [Concomitant]
     Dates: start: 20020423
  12. TRAZODONE [Concomitant]
     Dates: start: 20020423
  13. CEPHALEXIN [Concomitant]
     Dosage: DOSE-ONE CAPSULE EVERY 6 HOURS
     Dates: start: 20020423
  14. WARFARIN SODIUM [Concomitant]
     Dosage: 5 - 6 MG DAILY
     Dates: start: 20020423
  15. WELLBUTRIN SR [Concomitant]
     Indication: DEPRESSION
     Dates: start: 20020423
  16. WELLBUTRIN SR [Concomitant]
     Indication: APATHY
     Dates: start: 20020423
  17. WELLBUTRIN SR [Concomitant]
     Indication: SMOKING CESSATION THERAPY
     Dates: start: 20020423
  18. PREVACID [Concomitant]
     Dates: start: 20040209
  19. ALBUTEROL [Concomitant]
     Dates: start: 20040609
  20. RANITIDINE [Concomitant]
     Dates: start: 20040427
  21. SONATA [Concomitant]
     Dosage: 10 - 20 MG DAILY
     Dates: start: 20040209
  22. XANAX [Concomitant]
     Dates: start: 20040702
  23. PROVIGIL [Concomitant]
     Dosage: 100 - 200 MG
     Dates: start: 20040209
  24. ZOCOR [Concomitant]
     Dosage: 40 - 80 MG DAILY
     Dates: start: 20040209
  25. PRILOSEC [Concomitant]
     Dates: start: 20050606

REACTIONS (2)
  - GLUCOSE TOLERANCE IMPAIRED [None]
  - MYOCARDIAL INFARCTION [None]
